FAERS Safety Report 4766574-6 (Version None)
Quarter: 2005Q3

REPORT INFORMATION
  Report Type: 
  Country: None (occurrence: None)
  Receive Date: 20050908
  Receipt Date: 20050824
  Transmission Date: 20060218
  Serious: Yes (Hospitalization)
  Sender: FDA-Public Use
  Company Number: 195667

PATIENT
  Age: 36 Year
  Sex: Female

DRUGS (2)
  1. AVONEX [Suspect]
     Indication: MULTIPLE SCLEROSIS
     Dosage: 30 UG; QW; SEE IMAGE
     Route: 030
     Dates: start: 20020216, end: 20030801
  2. AVONEX [Suspect]
     Indication: MULTIPLE SCLEROSIS
     Dosage: 30 UG; QW; SEE IMAGE
     Route: 030
     Dates: start: 20030801, end: 20031101

REACTIONS (4)
  - BACK PAIN [None]
  - CYSTITIS [None]
  - DEHYDRATION [None]
  - HEADACHE [None]
